FAERS Safety Report 13916863 (Version 1)
Quarter: 2017Q3

REPORT INFORMATION
  Report Type: Spontaneous
  Country: CH (occurrence: CH)
  Receive Date: 20170829
  Receipt Date: 20170829
  Transmission Date: 20171127
  Serious: Yes (Other)
  Sender: FDA-Public Use
  Company Number: CH-TEVA-799270ISR

PATIENT
  Sex: Female

DRUGS (2)
  1. IRFEN 600 LACTAB [Suspect]
     Active Substance: IBUPROFEN
     Dosage: 600 MILLIGRAM DAILY;
     Dates: start: 20170809
  2. MYDOCALM DRAGEES [Suspect]
     Active Substance: TOLPERISONE
     Dosage: 150 MILLIGRAM DAILY;
     Route: 048
     Dates: start: 20170809

REACTIONS (4)
  - Ear swelling [Unknown]
  - Skin burning sensation [Unknown]
  - Scratch [Unknown]
  - Pharyngeal oedema [Unknown]

NARRATIVE: CASE EVENT DATE: 20170809
